FAERS Safety Report 5356632-X (Version None)
Quarter: 2007Q2

REPORT INFORMATION
  Report Type: 
  Country: None (occurrence: None)
  Receive Date: 20070614
  Receipt Date: 20070608
  Transmission Date: 20071010
  Serious: Yes (Hospitalization)
  Sender: FDA-Public Use
  Company Number: JP-BAYER-200710410BYL

PATIENT
  Age: 70 Year
  Sex: Female

DRUGS (2)
  1. ASPIRIN [Suspect]
     Indication: CEREBRAL INFARCTION
     Dosage: TOTAL DAILY DOSE: 100 MG  UNIT DOSE: 100 MG
     Route: 048
     Dates: start: 20060801, end: 20070201
  2. TICLOPIDINE HCL [Suspect]
     Indication: CEREBRAL INFARCTION
     Route: 048
     Dates: start: 20070206

REACTIONS (4)
  - COLITIS COLLAGENOUS [None]
  - DIARRHOEA [None]
  - HYPOPROTEINAEMIA [None]
  - MELAENA [None]
